FAERS Safety Report 15185146 (Version 1)
Quarter: 2018Q3

REPORT INFORMATION
  Report Type: Report from Study
  Country: BR (occurrence: BR)
  Receive Date: 20180723
  Receipt Date: 20180723
  Transmission Date: 20181010
  Serious: Yes (Other)
  Sender: FDA-Public Use
  Company Number: PHHY2017BR144394

PATIENT
  Age: 67 Year
  Sex: Female
  Weight: 78 kg

DRUGS (4)
  1. COSENTYX [Suspect]
     Active Substance: SECUKINUMAB
     Indication: PSORIATIC ARTHROPATHY
     Dosage: 300 MG, QW
     Route: 058
     Dates: start: 20170929
  2. COSENTYX [Suspect]
     Active Substance: SECUKINUMAB
     Indication: PSORIASIS
     Dosage: 300 MG, QW
     Route: 058
     Dates: start: 201709
  3. PURAN [Concomitant]
     Active Substance: LEVOTHYROXINE SODIUM
     Indication: HYPOTHYROIDISM
     Dosage: 1 DF, QD
     Route: 048
  4. COSENTYX [Suspect]
     Active Substance: SECUKINUMAB
     Dosage: 300 MG, QMO
     Route: 058

REACTIONS (17)
  - Mass [Recovering/Resolving]
  - Nail discolouration [Unknown]
  - Increased appetite [Recovering/Resolving]
  - Arthritis [Unknown]
  - Psoriasis [Not Recovered/Not Resolved]
  - Spinal deformity [Unknown]
  - Skin lesion [Unknown]
  - Wound complication [Unknown]
  - Depression [Unknown]
  - Gait disturbance [Unknown]
  - Skin discolouration [Unknown]
  - Skin haemorrhage [Unknown]
  - Weight increased [Unknown]
  - Drug effect incomplete [Unknown]
  - Viral infection [Unknown]
  - Nodule [Unknown]
  - Psoriasis [Recovered/Resolved]

NARRATIVE: CASE EVENT DATE: 201803
